FAERS Safety Report 12972478 (Version 4)
Quarter: 2017Q1

REPORT INFORMATION
  Report Type: Spontaneous
  Country: US (occurrence: US)
  Receive Date: 20161124
  Receipt Date: 20170307
  Transmission Date: 20170428
  Serious: Yes (Hospitalization, Other)
  Sender: FDA-Public Use
  Company Number: US-WEST-WARD PHARMACEUTICALS CORP.-US-H14001-16-02500

PATIENT
  Sex: Male
  Weight: 98.06 kg

DRUGS (3)
  1. METHOTREXATE. [Suspect]
     Active Substance: METHOTREXATE
     Indication: PSORIATIC ARTHROPATHY
     Route: 048
     Dates: start: 201011
  2. COSENTYX [Suspect]
     Active Substance: SECUKINUMAB
  3. COSENTYX [Suspect]
     Active Substance: SECUKINUMAB
     Indication: PROPHYLAXIS
     Dates: start: 20161116

REACTIONS (13)
  - Pneumonia [Unknown]
  - Claustrophobia [Not Recovered/Not Resolved]
  - Immunodeficiency [Not Recovered/Not Resolved]
  - Amnesia [Not Recovered/Not Resolved]
  - Diarrhoea [Not Recovered/Not Resolved]
  - Chest pain [Not Recovered/Not Resolved]
  - Viral infection [Unknown]
  - Lung disorder [Not Recovered/Not Resolved]
  - Dehydration [Unknown]
  - Anxiety [Not Recovered/Not Resolved]
  - Gastroenteritis viral [Unknown]
  - Nasopharyngitis [Not Recovered/Not Resolved]
  - Dyspnoea [Not Recovered/Not Resolved]

NARRATIVE: CASE EVENT DATE: 2012
